FAERS Safety Report 11101354 (Version 2)
Quarter: 2015Q2

REPORT INFORMATION
  Report Type: Spontaneous
  Country: DK (occurrence: DK)
  Receive Date: 20150508
  Receipt Date: 20150629
  Transmission Date: 20150821
  Serious: Yes (Death, Life-Threatening)
  Sender: FDA-Public Use
  Company Number: DK-CTI_01699_2015

PATIENT
  Age: 81 Year
  Sex: Male
  Weight: 84 kg

DRUGS (11)
  1. CORODIL [Concomitant]
     Active Substance: DIPYRIDAMOLE
     Dosage: DF
     Dates: start: 20120927, end: 20150421
  2. RETEPLASE [Suspect]
     Active Substance: RETEPLASE
     Dosage: 10 IU 2 TIMES WITH 30 MINUTE INCREMENT
     Route: 040
     Dates: start: 20150421
  3. CLOPIDOGREL [Suspect]
     Active Substance: CLOPIDOGREL BISULFATE
     Route: 048
     Dates: start: 20150421, end: 20150422
  4. HJERDYL [Suspect]
     Active Substance: ASPIRIN
     Indication: ACUTE MYOCARDIAL INFARCTION
     Dosage: SINGLE DOSE
     Route: 048
     Dates: start: 20150421, end: 20150422
  5. RETEPLASE [Suspect]
     Active Substance: RETEPLASE
     Dosage: 10 IU 2 TIMES WITH 30 MINUTE INCREMENT
     Route: 040
     Dates: start: 20150421
  6. FRAGMIN [Suspect]
     Active Substance: DALTEPARIN SODIUM
     Indication: ACUTE MYOCARDIAL INFARCTION
     Dosage: 10000 IU/ML; 30IE/KG IV. + 90 IU/KG
     Route: 058
     Dates: start: 20150421, end: 20150422
  7. CLOPIDOGREL [Suspect]
     Active Substance: CLOPIDOGREL BISULFATE
     Indication: ACUTE MYOCARDIAL INFARCTION
     Dosage: SINGLE DOSE
     Route: 048
     Dates: start: 20150421, end: 20150422
  8. AMLODIPINE [Concomitant]
     Active Substance: AMLODIPINE BESYLATE
     Dosage: DF
     Dates: start: 20100107, end: 20150421
  9. HJERDYL [Suspect]
     Active Substance: ASPIRIN
     Route: 048
     Dates: start: 20150421, end: 20150422
  10. RETEPLASE [Suspect]
     Active Substance: RETEPLASE
     Indication: ACUTE MYOCARDIAL INFARCTION
     Dosage: 10 IU 2 TIMES WITH 30 MINUTE INCREMENT
     Route: 040
     Dates: start: 20150421
  11. ELTROXIN [Concomitant]
     Active Substance: LEVOTHYROXINE
     Dosage: DF
     Dates: start: 20120919

REACTIONS (5)
  - Cardiac arrest [Fatal]
  - Brain oedema [Not Recovered/Not Resolved]
  - Intracranial pressure increased [Fatal]
  - Brain herniation [Not Recovered/Not Resolved]
  - Cerebral haemorrhage [Fatal]

NARRATIVE: CASE EVENT DATE: 20150422
